FAERS Safety Report 24601364 (Version 1)
Quarter: 2024Q4

REPORT INFORMATION
  Report Type: Other
  Country: CA (occurrence: CA)
  Receive Date: 20241111
  Receipt Date: 20241111
  Transmission Date: 20250115
  Serious: Yes (Life-Threatening, Other)
  Sender: APOTEX
  Company Number: CA-APOTEX-2024AP017376

PATIENT
  Age: 65 Year
  Sex: Female
  Weight: 72 kg

DRUGS (2)
  1. ARIPIPRAZOLE [Suspect]
     Active Substance: ARIPIPRAZOLE
     Indication: Major depression
     Dosage: 2 MILLIGRAM, QD
     Route: 048
  2. ARIPIPRAZOLE [Suspect]
     Active Substance: ARIPIPRAZOLE
     Indication: Generalised anxiety disorder

REACTIONS (1)
  - Suicidal ideation [Recovered/Resolved]
